FAERS Safety Report 5377409-5 (Version None)
Quarter: 2007Q3

REPORT INFORMATION
  Report Type: 
  Country: None (occurrence: None)
  Receive Date: 20070703
  Receipt Date: 20070621
  Transmission Date: 20080115
  Serious: Yes (Other)
  Sender: FDA-Public Use
  Company Number: B0470398A

PATIENT
  Age: 69 Year
  Sex: Male

DRUGS (8)
  1. ARTIST [Suspect]
     Indication: CARDIAC FAILURE
     Dosage: 1.25MG PER DAY
     Route: 048
     Dates: start: 20070307, end: 20070307
  2. RENIVACE [Concomitant]
     Dates: start: 20070306
  3. HEPARIN SODIUM [Concomitant]
     Dates: start: 20070306
  4. LACTEC [Concomitant]
     Dates: start: 20070306
  5. NITROGLYCERIN [Concomitant]
     Dates: start: 20070306
  6. OMEPRAL [Concomitant]
     Dates: start: 20070306
  7. SELBEX [Concomitant]
     Dates: start: 20070306
  8. AMLODIN [Concomitant]
     Dates: start: 20070306

REACTIONS (15)
  - ALANINE AMINOTRANSFERASE INCREASED [None]
  - ASPARTATE AMINOTRANSFERASE INCREASED [None]
  - BLOOD ALBUMIN DECREASED [None]
  - BLOOD LACTATE DEHYDROGENASE INCREASED [None]
  - DEPRESSED LEVEL OF CONSCIOUSNESS [None]
  - DYSPNOEA [None]
  - HAEMATOCRIT DECREASED [None]
  - HAEMOGLOBIN DECREASED [None]
  - HYPERCAPNIA [None]
  - LYMPHOCYTE COUNT DECREASED [None]
  - MONOCYTE COUNT DECREASED [None]
  - MONOCYTE COUNT INCREASED [None]
  - NEUTROPHIL COUNT INCREASED [None]
  - PLATELET COUNT DECREASED [None]
  - RED BLOOD CELL COUNT DECREASED [None]
